FAERS Safety Report 9417366 (Version 2)
Quarter: 2013Q4

REPORT INFORMATION
  Report Type: Spontaneous
  Country: US (occurrence: US)
  Receive Date: 20130724
  Receipt Date: 20131022
  Transmission Date: 20140711
  Serious: No
  Sender: FDA-Public Use
  Company Number: US-BRISTOL-MYERS SQUIBB COMPANY-18850149

PATIENT
  Age: 72 Year
  Sex: Male

DRUGS (9)
  1. ELIQUIS [Suspect]
     Indication: ATRIAL FIBRILLATION
     Route: 048
     Dates: start: 20130320, end: 20130416
  2. XARELTO [Concomitant]
     Indication: HAEMATURIA
  3. PRADAXA [Concomitant]
  4. AMLODIPINE [Concomitant]
  5. SYNTHROID [Concomitant]
  6. LIPITOR [Concomitant]
  7. TOPROL [Concomitant]
  8. PANTOPRAZOLE [Concomitant]
  9. TAMSULOSIN [Concomitant]

REACTIONS (1)
  - Abdominal pain upper [Recovered/Resolved]
